FAERS Safety Report 19808544 (Version 1)
Quarter: 2021Q3

REPORT INFORMATION
  Report Type: Report from Study
  Country: IT (occurrence: IT)
  Receive Date: 20210908
  Receipt Date: 20210908
  Transmission Date: 20211014
  Serious: Yes (Hospitalization)
  Sender: FDA-Public Use
  Company Number: IT-PFIZER INC-202101122641

PATIENT
  Age: 91 Year
  Sex: Female

DRUGS (8)
  1. RIVASTIGMINE. [Suspect]
     Active Substance: RIVASTIGMINE
     Dosage: 9.5 MG, 1X/DAY
     Dates: start: 20210101, end: 20210730
  2. EUTIROX [Concomitant]
     Active Substance: LEVOTHYROXINE SODIUM
     Dosage: 75 UG
  3. LYRICA [Suspect]
     Active Substance: PREGABALIN
     Dosage: 75 MG, 1X/DAY
     Dates: start: 20210101, end: 20210730
  4. OLMEGAN [Concomitant]
     Active Substance: HYDROCHLOROTHIAZIDE\OLMESARTAN MEDOXOMIL
     Dosage: 20 MG
  5. ALTIAZEM [Concomitant]
     Active Substance: DILTIAZEM HYDROCHLORIDE
     Dosage: 120 MG
  6. ACETYLSALICYLIC ACID [Concomitant]
     Active Substance: ASPIRIN
     Dosage: 100 MG
  7. HALCION [Suspect]
     Active Substance: TRIAZOLAM
     Dosage: 0.25 MG, 1X/DAY
     Dates: start: 20210101, end: 20210730
  8. CIPRALEX [Suspect]
     Active Substance: ESCITALOPRAM OXALATE
     Dosage: 5 MG, 1X/DAY
     Dates: start: 20210101, end: 20210730

REACTIONS (2)
  - Dyspnoea [Not Recovered/Not Resolved]
  - Confusional state [Not Recovered/Not Resolved]

NARRATIVE: CASE EVENT DATE: 20210730
